FAERS Safety Report 6356411-0 (Version None)
Quarter: 2009Q3

REPORT INFORMATION
  Report Type: 
  Country: None (occurrence: None)
  Receive Date: 20090915
  Receipt Date: 20090909
  Transmission Date: 20100115
  Serious: Yes (Hospitalization)
  Sender: FDA-Public Use
  Company Number: US-ELI_LILLY_AND_COMPANY-US200905002712

PATIENT
  Sex: Male

DRUGS (13)
  1. HUMULIN N [Suspect]
  2. HUMALOG [Suspect]
  3. HUMALOG MIX 75/25 [Suspect]
  4. METOPROLOL TARTRATE [Concomitant]
  5. HYDROCHLOROTHIAZIDE [Concomitant]
  6. BENAZEPRIL HYDROCHLORIDE [Concomitant]
     Indication: COUGH
  7. ASPIRIN [Concomitant]
  8. CLARITIN [Concomitant]
  9. HYDRODIURIL [Concomitant]
  10. LOPRESSOR [Concomitant]
  11. LOTENSIN [Concomitant]
  12. LIPITOR [Concomitant]
  13. LISINOPRIL [Concomitant]

REACTIONS (6)
  - ANGINA PECTORIS [None]
  - BLOOD GLUCOSE INCREASED [None]
  - COUGH [None]
  - DRUG DISPENSING ERROR [None]
  - MYOCARDIAL INFARCTION [None]
  - VISUAL ACUITY REDUCED [None]
